FAERS Safety Report 5949404-6 (Version None)
Quarter: 2008Q4

REPORT INFORMATION
  Report Type: 
  Country: None (occurrence: None)
  Receive Date: 20081112
  Receipt Date: 20081030
  Transmission Date: 20090506
  Serious: Yes (Hospitalization)
  Sender: FDA-Public Use
  Company Number: PHBS2008AU06189

PATIENT
  Age: 60 Year
  Sex: Male

DRUGS (2)
  1. OCTREOTIDE ACETATE [Suspect]
     Indication: ACROMEGALY
  2. SOMATOSTATIN [Suspect]

REACTIONS (4)
  - INSULIN-LIKE GROWTH FACTOR INCREASED [None]
  - NEPHRECTOMY [None]
  - RENAL CANCER [None]
  - THYROID NEOPLASM [None]
